FAERS Safety Report 5130404-3 (Version None)
Quarter: 2006Q4

REPORT INFORMATION
  Report Type: 
  Country: None (occurrence: None)
  Receive Date: 20061013
  Receipt Date: 20060928
  Transmission Date: 20070319
  Serious: Yes (Hospitalization)
  Sender: FDA-Public Use
  Company Number: US200605002162

PATIENT
  Age: 47 Year
  Sex: Female
  Weight: 61.2 kg

DRUGS (3)
  1. ZYPREXA [Suspect]
     Dosage: 10 MG
     Dates: start: 20010101, end: 20051001
  2. CELEXA [Concomitant]
  3. LEXAPRO [Concomitant]

REACTIONS (5)
  - BLOOD CHOLESTEROL INCREASED [None]
  - BLOOD TRIGLYCERIDES INCREASED [None]
  - DIABETES MELLITUS [None]
  - LOCALISED INFECTION [None]
  - OBESITY [None]
